FAERS Safety Report 10143271 (Version 2)
Quarter: 2014Q2

REPORT INFORMATION
  Report Type: Spontaneous
  Country: JP (occurrence: JP)
  Receive Date: 20140430
  Receipt Date: 20140430
  Transmission Date: 20141212
  Serious: Yes (Hospitalization, Other)
  Sender: FDA-Public Use
  Company Number: JP-MPIJNJ-2014JNJ001003

PATIENT
  Sex: 0

DRUGS (16)
  1. VELCADE [Suspect]
     Indication: SYSTEMIC LUPUS ERYTHEMATOSUS
     Dosage: 1.3 MG/M2, QD
     Route: 058
     Dates: start: 20140303, end: 20140313
  2. NEORAL [Suspect]
     Indication: SYSTEMIC LUPUS ERYTHEMATOSUS
     Dosage: 75 MG, BID
     Route: 048
     Dates: start: 20060728, end: 20140318
  3. PREDONINE                          /00016201/ [Concomitant]
     Indication: SYSTEMIC LUPUS ERYTHEMATOSUS
     Dosage: 10 MG, UNK
     Route: 048
     Dates: start: 20120524, end: 20130318
  4. ALFAROL [Concomitant]
     Indication: OSTEOPOROSIS
     Dosage: 1 ?G, QD
     Route: 048
     Dates: start: 20060203, end: 20140318
  5. MYSLEE [Concomitant]
     Indication: INSOMNIA
     Dosage: 10 MG, QD
     Route: 048
     Dates: start: 2000, end: 20140318
  6. FERROMIA                           /00023516/ [Concomitant]
     Indication: ANAEMIA
     Dosage: 50 MG, QD
     Route: 048
     Dates: start: 20110402, end: 20140318
  7. RINDERON VG [Concomitant]
     Indication: INJECTION SITE REACTION
     Dosage: UNK UNK, PRN
     Route: 061
     Dates: start: 20130306, end: 20140318
  8. LEUPLIN [Concomitant]
     Indication: ADENOMYOSIS
     Dosage: 1.88 MG, MONTHLY
     Route: 058
     Dates: start: 20140114
  9. HYALEIN [Concomitant]
     Dosage: UNK
     Route: 047
     Dates: start: 20121219
  10. DIQUAS [Concomitant]
     Indication: DRY EYE
     Dosage: UNK
     Route: 047
     Dates: start: 20121219
  11. BONOTEO [Concomitant]
     Indication: OSTEOPOROSIS
     Dosage: 50 MG, MONTHLY
     Route: 048
     Dates: start: 20121020, end: 20140318
  12. MERCAZOLE [Concomitant]
     Indication: BASEDOW^S DISEASE
     Dosage: 5 MG, QD
     Route: 048
     Dates: start: 20130318, end: 20140318
  13. MERCAZOLE [Concomitant]
     Dosage: 5 MG, QD
     Route: 048
     Dates: start: 20140321
  14. THYRADIN S [Concomitant]
     Indication: BASEDOW^S DISEASE
     Dosage: 25 ?G, QD
     Route: 048
     Dates: start: 20130318, end: 20140318
  15. THYRADIN S [Concomitant]
     Dosage: 25 ?G, UNK
     Route: 048
     Dates: start: 20140321
  16. PRIMPERAN [Concomitant]
     Indication: NAUSEA
     Dosage: 5 MG, UNK
     Route: 048
     Dates: start: 20130318, end: 20140315

REACTIONS (16)
  - Thrombotic microangiopathy [Recovered/Resolved]
  - Renal disorder [Recovering/Resolving]
  - Hypertension [Recovering/Resolving]
  - Platelet count decreased [Recovered/Resolved]
  - Headache [Recovered/Resolved]
  - Off label use [Unknown]
  - Blood lactate dehydrogenase abnormal [Unknown]
  - Aspartate aminotransferase abnormal [Unknown]
  - Anaemia [Unknown]
  - Blood bilirubin increased [Unknown]
  - Pyrexia [Recovered/Resolved]
  - Vomiting [Recovered/Resolved]
  - Nausea [Recovered/Resolved]
  - Infection [Unknown]
  - Malaise [Not Recovered/Not Resolved]
  - Decreased appetite [Recovered/Resolved]
